FAERS Safety Report 20654956 (Version 1)
Quarter: 2022Q1

REPORT INFORMATION
  Report Type: Spontaneous
  Country: CN (occurrence: CN)
  Receive Date: 20220330
  Receipt Date: 20220330
  Transmission Date: 20220424
  Serious: Yes (Other)
  Sender: FDA-Public Use
  Company Number: CN-PFIZER INC-202200452016

PATIENT
  Age: 84 Year
  Sex: Male
  Weight: 60 kg

DRUGS (2)
  1. PREGABALIN [Suspect]
     Active Substance: PREGABALIN
     Indication: Perineal pain
     Dosage: 75 MG, 3X/DAY
     Route: 048
     Dates: start: 20220120, end: 20220221
  2. DULOXETINE HYDROCHLORIDE [Suspect]
     Active Substance: DULOXETINE HYDROCHLORIDE
     Indication: Anxiety
     Dosage: 20 MG, 2X/DAY
     Route: 048
     Dates: start: 20220120, end: 20220220

REACTIONS (4)
  - Depressed level of consciousness [Recovering/Resolving]
  - Somnolence [Recovering/Resolving]
  - Decreased appetite [Recovering/Resolving]
  - Mental fatigue [Recovering/Resolving]

NARRATIVE: CASE EVENT DATE: 20220222
